FAERS Safety Report 4479984-1 (Version None)
Quarter: 2004Q3

REPORT INFORMATION
  Report Type: 
  Country: None (occurrence: None)
  Receive Date: 20040930
  Receipt Date: 20040830
  Transmission Date: 20050211
  Serious: No
  Sender: FDA-Public Use
  Company Number: 200410323BBE

PATIENT
  Age: 39 Year
  Sex: Female

DRUGS (1)
  1. GAMUNEX [Suspect]
     Dosage: 50 G,  INTRAVENOUS
     Route: 042
     Dates: start: 20040830

REACTIONS (2)
  - ANAPHYLACTOID REACTION [None]
  - CONJUNCTIVITIS [None]
